FAERS Safety Report 22104795 (Version 1)
Quarter: 2023Q1

REPORT INFORMATION
  Report Type: Spontaneous
  Country: NL (occurrence: NL)
  Receive Date: 20230316
  Receipt Date: 20230316
  Transmission Date: 20230417
  Serious: Yes (Other)
  Sender: FDA-Public Use
  Company Number: NL-JNJFOC-20230319351

PATIENT
  Sex: Female

DRUGS (1)
  1. TOPAMAX [Suspect]
     Active Substance: TOPIRAMATE
     Indication: Product used for unknown indication
     Route: 048

REACTIONS (4)
  - Seizure [Unknown]
  - Therapeutic product effect variable [Unknown]
  - Product blister packaging issue [Unknown]
  - Product colour issue [Unknown]

NARRATIVE: CASE EVENT DATE: 20230109
